FAERS Safety Report 19794181 (Version 1)
Quarter: 2021Q3

REPORT INFORMATION
  Report Type: Report from Study
  Country: US (occurrence: US)
  Receive Date: 20210906
  Receipt Date: 20210906
  Transmission Date: 20211014
  Serious: Yes (Other)
  Sender: FDA-Public Use
  Company Number: US-SA-2021SA291371

PATIENT
  Age: 38 Year
  Sex: Male

DRUGS (1)
  1. DUPILUMAB [Suspect]
     Active Substance: DUPILUMAB
     Indication: ASTHMA
     Dosage: UNK

REACTIONS (8)
  - COVID-19 [Unknown]
  - Anosmia [Unknown]
  - Dizziness [Unknown]
  - Cold sweat [Unknown]
  - Ageusia [Unknown]
  - COVID-19 pneumonia [Unknown]
  - Hyperhidrosis [Unknown]
  - Pain [Unknown]

NARRATIVE: CASE EVENT DATE: 20210815
